FAERS Safety Report 5008181-6 (Version None)
Quarter: 2006Q2

REPORT INFORMATION
  Report Type: 
  Country: None (occurrence: None)
  Receive Date: 20060404
  Receipt Date: 20060111
  Transmission Date: 20061013
  Serious: Yes (Hospitalization)
  Sender: FDA-Public Use
  Company Number: 2006007826

PATIENT
  Age: 18 Year
  Sex: Female

DRUGS (6)
  1. GEODON [Suspect]
     Indication: ILL-DEFINED DISORDER
     Dosage: 240 MG (2 IN 1 D)
  2. EFFEXOR [Concomitant]
  3. LITHIUM (LITHIUM) [Concomitant]
  4. LEVOTHYROXINE SODIUM [Concomitant]
  5. KLONOPIN [Concomitant]
  6. ALBUTEROL [Concomitant]

REACTIONS (3)
  - BREAST DISCHARGE [None]
  - HYPERPROLACTINAEMIA [None]
  - PSYCHOTIC DISORDER [None]
